FAERS Safety Report 5719281-7 (Version None)
Quarter: 2008Q2

REPORT INFORMATION
  Report Type: 
  Country: None (occurrence: None)
  Receive Date: 20080428
  Receipt Date: 20080422
  Transmission Date: 20081010
  Serious: Yes (Disabling, Other)
  Sender: FDA-Public Use
  Company Number: PHEH2008US02493

PATIENT
  Age: 72 Year
  Sex: Male
  Weight: 86.621 kg

DRUGS (5)
  1. DIOVAN HCT [Suspect]
     Indication: HYPERTENSION
     Dosage: 160MG VAL/12.5MG VAL, QD
     Route: 048
     Dates: start: 20080118, end: 20080221
  2. PLAVIX [Suspect]
     Indication: TRANSIENT ISCHAEMIC ATTACK
     Dosage: 75 MG, QD
     Route: 048
     Dates: start: 20080118, end: 20080221
  3. SIMVASTATIN [Concomitant]
     Dosage: 20 MG, QD
  4. LISINOPRIL [Concomitant]
     Indication: COUGH
     Dosage: 10 MG, UNK
     Dates: end: 20080118
  5. VIAGRA [Concomitant]
     Dosage: 100 MG, UNK

REACTIONS (7)
  - ACTIVITIES OF DAILY LIVING IMPAIRED [None]
  - AGITATION [None]
  - INSOMNIA [None]
  - PAIN [None]
  - PRURITUS [None]
  - RASH PAPULAR [None]
  - SKIN INFECTION [None]
